FAERS Safety Report 7305914-0 (Version None)
Quarter: 2011Q1

REPORT INFORMATION
  Report Type: 
  Country: None (occurrence: None)
  Receive Date: 20110222
  Receipt Date: 20110215
  Transmission Date: 20110831
  Serious: Yes (Death)
  Sender: FDA-Public Use
  Company Number: US-PFIZER INC-2010182323

PATIENT
  Sex: Female

DRUGS (2)
  1. VFEND [Suspect]
     Indication: MYCETOMA MYCOTIC
  2. VFEND [Suspect]
     Indication: ASPERGILLOSIS
     Dosage: 200 MG, 2X/DAY
     Route: 048
     Dates: start: 20100324, end: 20101208

REACTIONS (1)
  - DISEASE PROGRESSION [None]
